FAERS Safety Report 21982699 (Version 1)
Quarter: 2023Q1

REPORT INFORMATION
  Report Type: 
  Country: JP (occurrence: JP)
  Receive Date: 20230213
  Receipt Date: 20230213
  Transmission Date: 20230417
  Serious: Yes (Hospitalization)
  Sender: FDA-Public Use
  Company Number: JP-JNJFOC-20230222846

PATIENT
  Age: 48 Year
  Sex: Male
  Weight: 67 kg

DRUGS (5)
  1. ITRACONAZOLE [Suspect]
     Active Substance: ITRACONAZOLE
     Indication: Dermatophytosis of nail
     Dosage: PULSE THERAPY
     Route: 048
     Dates: start: 20220920, end: 20220927
  2. HERBALS [Concomitant]
     Active Substance: HERBALS
     Dosage: DOSE UNKNOWN
     Route: 048
  3. HANGEBYAKUJUTSUTEMMATO [ALISMA PLANTAGO-AQUATICA SUBSP. ORIENTALE TUBE [Concomitant]
     Dosage: DOSE UNKNOWN
     Route: 048
  4. RISPERIDONE [Concomitant]
     Active Substance: RISPERIDONE
     Dosage: DOSE UNKNOWN
     Route: 048
  5. COIX SEED EXTRACT [COIX LACRYMA-JOBI SEED EXTRACT] [Concomitant]
     Dosage: DOSE UNKNOWN
     Route: 048

REACTIONS (1)
  - Drug eruption [Recovered/Resolved]

NARRATIVE: CASE EVENT DATE: 20220928
